FAERS Safety Report 5746701-4 (Version None)
Quarter: 2008Q2

REPORT INFORMATION
  Report Type: 
  Country: None (occurrence: None)
  Receive Date: 20080522
  Receipt Date: 20080520
  Transmission Date: 20081010
  Serious: Yes (Hospitalization)
  Sender: FDA-Public Use
  Company Number: US-ASTRAZENECA-2008UW10323

PATIENT
  Age: 75 Year
  Sex: Female
  Weight: 90.7 kg

DRUGS (7)
  1. PULMICORT RESPULES [Suspect]
     Indication: LUNG DISORDER
     Dosage: 0.25 MG/DL THEN 1.0 MG/DL
     Route: 055
     Dates: start: 20070101
  2. BROVANA [Suspect]
  3. ADVAIR DISKUS 100/50 [Concomitant]
  4. SPIRIVA [Concomitant]
  5. LASIX/K+ [Concomitant]
  6. PREDNISONE TAB [Concomitant]
  7. LEVAQUIN [Concomitant]

REACTIONS (3)
  - EPISTAXIS [None]
  - HEADACHE [None]
  - PALPITATIONS [None]
